FAERS Safety Report 24935796 (Version 1)
Quarter: 2025Q1

REPORT INFORMATION
  Report Type: Report from Study
  Country: US (occurrence: US)
  Receive Date: 20250206
  Receipt Date: 20250206
  Transmission Date: 20250408
  Serious: Yes (Death, Other)
  Sender: EXELIXIS
  Company Number: US-EXELIXIS-CABO-24081070

PATIENT
  Age: 65 Year
  Sex: Male

DRUGS (8)
  1. CABOMETYX [Suspect]
     Active Substance: CABOZANTINIB S-MALATE
     Indication: Laryngeal cancer
     Dosage: 40 MG, QD
     Dates: start: 20240808
  2. METFORMIN [Concomitant]
     Active Substance: METFORMIN HYDROCHLORIDE
  3. ALBUTEROL [Concomitant]
     Active Substance: ALBUTEROL
  4. TRELEGY ELLIPTA [Concomitant]
     Active Substance: FLUTICASONE FUROATE\UMECLIDINIUM BROMIDE\VILANTEROL TRIFENATATE
  5. CALCITRIOL [Concomitant]
     Active Substance: CALCITRIOL
  6. METAMUCIL [Concomitant]
     Active Substance: PLANTAGO SEED
  7. ACETAMINOPHEN\HYDROCODONE [Concomitant]
     Active Substance: ACETAMINOPHEN\HYDROCODONE
  8. LOSARTAN [Concomitant]
     Active Substance: LOSARTAN

REACTIONS (15)
  - Dehydration [Recovering/Resolving]
  - Death [Fatal]
  - Dyspnoea [Unknown]
  - Erythema [Unknown]
  - Dizziness [Unknown]
  - Vomiting [Recovered/Resolved]
  - Dry skin [Unknown]
  - Rash macular [Unknown]
  - Insomnia [Unknown]
  - Laboratory test abnormal [Unknown]
  - Blood glucose increased [Unknown]
  - Blood sodium decreased [Unknown]
  - Fatigue [Unknown]
  - Cough [Recovering/Resolving]
  - Off label use [Unknown]

NARRATIVE: CASE EVENT DATE: 20240911
